FAERS Safety Report 7753881-8 (Version None)
Quarter: 2011Q3

REPORT INFORMATION
  Report Type: 
  Country: None (occurrence: None)
  Receive Date: 20110915
  Receipt Date: 20110906
  Transmission Date: 20111222
  Serious: Yes (Other)
  Sender: FDA-Public Use
  Company Number: US-ASTRAZENECA-2011SE33918

PATIENT
  Age: 48 Year
  Sex: Male
  Weight: 140.6 kg

DRUGS (10)
  1. CYCLOBENZAPRINE HCL [Concomitant]
     Route: 048
  2. AMITRIPTYLINE HCL [Concomitant]
     Route: 048
  3. NEXIUM [Suspect]
     Route: 048
  4. AMBIEN [Concomitant]
     Route: 048
  5. DIGOXIN [Concomitant]
     Route: 048
  6. CATAPRES [Concomitant]
     Route: 048
  7. LISINOPRIL AND HYDROCHLOROTHIAZIDE [Suspect]
     Dosage: 20+12.5 MG, 2 DOSAGE FORM EVERY DAY
     Route: 048
  8. ASPIRIN [Concomitant]
     Route: 048
  9. TOPROL-XL [Suspect]
     Route: 048
  10. VICODIN ES [Concomitant]
     Indication: PAIN
     Dosage: 7.5-750 MG, 1 DOSAGE FORM EVERY 4-6 HOURS AS NEEDED NOT TO EXCEED 5 TABLETS IN 24 HOURS
     Route: 048

REACTIONS (19)
  - PERIPHERAL COLDNESS [None]
  - PAIN [None]
  - MALIGNANT HYPERTENSION [None]
  - MYOCARDIAL INFARCTION [None]
  - ATRIAL FIBRILLATION [None]
  - ANGINA PECTORIS [None]
  - GASTROOESOPHAGEAL REFLUX DISEASE [None]
  - DYSPNOEA EXERTIONAL [None]
  - ASTHENIA [None]
  - CHEST PAIN [None]
  - ERECTILE DYSFUNCTION [None]
  - VISUAL IMPAIRMENT [None]
  - ARTHRALGIA [None]
  - MYALGIA [None]
  - FATIGUE [None]
  - INTERMITTENT CLAUDICATION [None]
  - DYSPNOEA [None]
  - PALPITATIONS [None]
  - CHEST DISCOMFORT [None]
